FAERS Safety Report 15740416 (Version 1)
Quarter: 2018Q4

REPORT INFORMATION
  Report Type: Spontaneous
  Country: US (occurrence: US)
  Receive Date: 20181219
  Receipt Date: 20181219
  Transmission Date: 20190205
  Serious: Yes (Hospitalization, Disabling, Other)
  Sender: FDA-Public Use
  Company Number: None

PATIENT
  Age: 10 Year
  Sex: Male
  Weight: 62.1 kg

DRUGS (3)
  1. MIRALAX [Suspect]
     Active Substance: POLYETHYLENE GLYCOL 3350
     Indication: LARGE INTESTINAL OBSTRUCTION
     Dosage: QUANTITY:1 17 GRAMS;OTHER FREQUENCY:2X-6X/DAY SCRIPT;?
     Route: 048
     Dates: start: 20180619, end: 20181206
  2. MIRALAX [Suspect]
     Active Substance: POLYETHYLENE GLYCOL 3350
     Indication: ENCOPRESIS
     Dosage: QUANTITY:1 17 GRAMS;OTHER FREQUENCY:2X-6X/DAY SCRIPT;?
     Route: 048
     Dates: start: 20180619, end: 20181206
  3. MIRALAX [Suspect]
     Active Substance: POLYETHYLENE GLYCOL 3350
     Indication: CONDITION AGGRAVATED
     Dosage: QUANTITY:1 17 GRAMS;OTHER FREQUENCY:2X-6X/DAY SCRIPT;?
     Route: 048
     Dates: start: 20180619, end: 20181206

REACTIONS (6)
  - Psychotic disorder [None]
  - Aggression [None]
  - Off label use [None]
  - Product administered to patient of inappropriate age [None]
  - Treatment noncompliance [None]
  - Product complaint [None]

NARRATIVE: CASE EVENT DATE: 20180705
